FAERS Safety Report 17426446 (Version 3)
Quarter: 2020Q1

REPORT INFORMATION
  Report Type: Spontaneous
  Country: CO (occurrence: CO)
  Receive Date: 20200217
  Receipt Date: 20200327
  Transmission Date: 20200409
  Serious: Yes (Hospitalization)
  Sender: FDA-Public Use
  Company Number: CO-PFIZER INC-2020066357

PATIENT
  Age: 11 Year
  Sex: Male

DRUGS (1)
  1. GENOTROPIN [Suspect]
     Active Substance: SOMATROPIN
     Dosage: 1.2 MG, UNK
     Route: 058
     Dates: start: 20200128

REACTIONS (4)
  - Dysuria [Recovered/Resolved]
  - Product quality issue [Unknown]
  - Product dose omission [Unknown]
  - Urinary tract pain [Recovered/Resolved]

NARRATIVE: CASE EVENT DATE: 20200206
